FAERS Safety Report 20237143 (Version 1)
Quarter: 2021Q4

REPORT INFORMATION
  Report Type: Spontaneous
  Country: US (occurrence: None)
  Receive Date: 20211227
  Receipt Date: 20211227
  Transmission Date: 20220304
  Serious: Yes (Hospitalization)
  Sender: FDA-Public Use
  Company Number: None

PATIENT
  Age: 71 Year
  Sex: Female
  Weight: 76.65 kg

DRUGS (10)
  1. BARICITINIB [Suspect]
     Active Substance: BARICITINIB
     Indication: COVID-19
     Dosage: FREQUENCY : DAILY;?
     Route: 048
     Dates: start: 20211204, end: 20211217
  2. Docusate Sodium, 100 mg [Concomitant]
     Dates: start: 20211204
  3. Melatonin, 6 mg [Concomitant]
     Dates: start: 20211215
  4. Pantoprazole DR, 20 mg [Concomitant]
     Dates: start: 20211206
  5. Polyethylene Glycol, 17 g [Concomitant]
     Dates: start: 20211204
  6. Senna, 8.6 mg [Concomitant]
     Dates: start: 20211209
  7. Acetaminophen, 650 mg [Concomitant]
     Dates: start: 20211204
  8. Albuterol, 2.5 mg [Concomitant]
     Dates: start: 20211204
  9. Bisacodyl, 10 mg [Concomitant]
     Dates: start: 20211204
  10. Dextromethorphan-guaifensein, 1 tab [Concomitant]
     Dates: start: 20211213

REACTIONS (2)
  - Dyspnoea [None]
  - Pneumonia [None]

NARRATIVE: CASE EVENT DATE: 20211220
